FAERS Safety Report 4283029-6 (Version None)
Quarter: 2004Q1

REPORT INFORMATION
  Report Type: 
  Country: None (occurrence: None)
  Receive Date: 20040129
  Receipt Date: 20040122
  Transmission Date: 20041129
  Serious: Yes (Hospitalization)
  Sender: FDA-Public Use
  Company Number: 2004UW01124

PATIENT

DRUGS (1)
  1. IRESSA [Suspect]
     Dosage: 250 MG QD PO
     Route: 048

REACTIONS (1)
  - PANCYTOPENIA [None]
